FAERS Safety Report 17734227 (Version 1)
Quarter: 2020Q2

REPORT INFORMATION
  Report Type: Report from Study
  Country: MX (occurrence: MX)
  Receive Date: 20200501
  Receipt Date: 20200501
  Transmission Date: 20200714
  Serious: Yes (Other)
  Sender: FDA-Public Use
  Company Number: NVSC2020MX119025

PATIENT
  Sex: Female
  Weight: 60 kg

DRUGS (1)
  1. EXFORGE [Suspect]
     Active Substance: AMLODIPINE BESYLATE\VALSARTAN
     Indication: HYPERTENSION
     Dosage: UNK UNK, QD (5/160 MG)
     Route: 048

REACTIONS (5)
  - Decreased appetite [Unknown]
  - Off label use [Unknown]
  - Blood pressure increased [Unknown]
  - Dizziness [Unknown]
  - Weight decreased [Unknown]
